FAERS Safety Report 13214022 (Version 2)
Quarter: 2017Q2

REPORT INFORMATION
  Report Type: Spontaneous
  Country: DE (occurrence: DE)
  Receive Date: 20170210
  Receipt Date: 20170410
  Transmission Date: 20170830
  Serious: Yes (Hospitalization, Other)
  Sender: FDA-Public Use
  Company Number: DE-SHIRE-DE201702863

PATIENT
  Age: 64 Year
  Sex: Female

DRUGS (6)
  1. ETHAMBUTOL [Suspect]
     Active Substance: ETHAMBUTOL HYDROCHLORIDE
     Indication: PULMONARY TUBERCULOSIS
     Dosage: 400 MG, UNKNOWN
     Route: 065
     Dates: start: 201611
  2. MEZAVANT [Suspect]
     Active Substance: MESALAMINE
     Indication: COLITIS ULCERATIVE
     Dosage: 2.4 G (1200 MG 2-0-0), UNKNOWN
     Route: 048
     Dates: start: 2014
  3. MEZAVANT [Suspect]
     Active Substance: MESALAMINE
     Indication: CROHN^S DISEASE
  4. ISONIAZID. [Suspect]
     Active Substance: ISONIAZID
     Indication: PULMONARY TUBERCULOSIS
     Dosage: UNK, UNKNOWN
     Route: 065
     Dates: start: 201611
  5. RIFAMPICIN [Suspect]
     Active Substance: RIFAMPIN
     Indication: PULMONARY TUBERCULOSIS
     Dosage: 450 MG, UNKNOWN
     Route: 065
     Dates: start: 201611
  6. PYRAZINAMIDE. [Suspect]
     Active Substance: PYRAZINAMIDE
     Indication: PULMONARY TUBERCULOSIS
     Dosage: 500 MG, UNKNOWN
     Route: 065
     Dates: start: 201611

REACTIONS (2)
  - Pulmonary tuberculosis [Unknown]
  - Drug interaction [Unknown]

NARRATIVE: CASE EVENT DATE: 201611
